FAERS Safety Report 11078478 (Version 5)
Quarter: 2016Q3

REPORT INFORMATION
  Report Type: Report from Study
  Country: BR (occurrence: BR)
  Receive Date: 20150430
  Receipt Date: 20160909
  Transmission Date: 20161109
  Serious: Yes (Hospitalization, Other)
  Sender: FDA-Public Use
  Company Number: PHHY2015BR050725

PATIENT
  Age: 49 Year
  Sex: Female
  Weight: 60 kg

DRUGS (6)
  1. EXJADE [Suspect]
     Active Substance: DEFERASIROX
     Dosage: 15 MG/KG (2 DF OF 500 MG), QD
     Route: 048
     Dates: end: 201503
  2. TRAMAL [Concomitant]
     Active Substance: TRAMADOL
     Indication: PAIN
     Dosage: 1 DF, Q6H (IF STRONG PAIN 1 DF Q4H)
     Route: 048
  3. EXJADE [Suspect]
     Active Substance: DEFERASIROX
     Dosage: 15 MG/KG (2 DF OF 500 MG), QD
     Route: 048
  4. EXJADE [Suspect]
     Active Substance: DEFERASIROX
     Indication: SICKLE CELL ANAEMIA
     Dosage: 25 MG/KG, (3 DF OF 500 MG), QD (30 MINUTES BEFORE LUNCH)
     Route: 048
  5. FOLIC ACID. [Concomitant]
     Active Substance: FOLIC ACID
     Indication: SICKLE CELL ANAEMIA
     Dosage: 1 DF, QD
     Route: 048
  6. HYDREA [Concomitant]
     Active Substance: HYDROXYUREA
     Indication: SICKLE CELL ANAEMIA
     Dosage: 2 DF OF 500 MG, QD
     Route: 048

REACTIONS (12)
  - Kidney infection [Recovered/Resolved]
  - Escherichia infection [Unknown]
  - Sickle cell anaemia with crisis [Recovering/Resolving]
  - Pain [Recovering/Resolving]
  - Arthralgia [Recovering/Resolving]
  - Back pain [Recovered/Resolved]
  - Klebsiella infection [Unknown]
  - Fatigue [Recovering/Resolving]
  - Influenza [Unknown]
  - Contusion [Recovering/Resolving]
  - Peripheral swelling [Recovering/Resolving]
  - Blood iron increased [Recovering/Resolving]

NARRATIVE: CASE EVENT DATE: 20150406
